FAERS Safety Report 22045445 (Version 1)
Quarter: 2023Q1

REPORT INFORMATION
  Report Type: Spontaneous
  Country: US (occurrence: None)
  Receive Date: 20230227
  Receipt Date: 20230227
  Transmission Date: 20230418
  Serious: Yes (Hospitalization)
  Sender: FDA-Public Use
  Company Number: None

PATIENT
  Age: 65 Year
  Sex: Female

DRUGS (1)
  1. NUCALA [Suspect]
     Active Substance: MEPOLIZUMAB
     Indication: Pulmonary eosinophilia
     Dosage: OTHER FREQUENCY : OTHER;?
     Route: 058
     Dates: start: 202211

REACTIONS (1)
  - Respiratory disorder [None]

NARRATIVE: CASE EVENT DATE: 20230213
